FAERS Safety Report 21060350 (Version 1)
Quarter: 2022Q3

REPORT INFORMATION
  Report Type: Spontaneous
  Country: US (occurrence: US)
  Receive Date: 20220708
  Receipt Date: 20220708
  Transmission Date: 20221026
  Serious: No
  Sender: FDA-Public Use
  Company Number: US-SA-SAC20220705001787

PATIENT
  Age: 39 Year
  Sex: Male

DRUGS (17)
  1. DUPIXENT [Suspect]
     Active Substance: DUPILUMAB
     Indication: Dermatitis atopic
     Dosage: 300 MG, QOW
     Route: 058
  2. AIMOVIG [Suspect]
     Active Substance: ERENUMAB-AOOE
  3. VITAMIN D3 [Concomitant]
     Active Substance: CHOLECALCIFEROL
  4. NYSTATIN [Concomitant]
     Active Substance: NYSTATIN
     Dosage: 100000/G
  5. DESOXIMETASONE [Concomitant]
     Active Substance: DESOXIMETASONE
  6. BUPROPION HYDROCHLORIDE XL [Concomitant]
     Active Substance: BUPROPION HYDROCHLORIDE
     Dosage: 300MG TAB ER 24H
  7. PREGABALIN [Concomitant]
     Active Substance: PREGABALIN
  8. LITHIUM CARBONATE [Concomitant]
     Active Substance: LITHIUM CARBONATE
  9. VENLAFAXINE HCL [Concomitant]
     Active Substance: VENLAFAXINE HYDROCHLORIDE
     Dosage: 75 MG CAP.SR 24H
  10. PRAZOSIN HYDROCHLORIDE [Concomitant]
     Active Substance: PRAZOSIN HYDROCHLORIDE
  11. LAMICTAL [Concomitant]
     Active Substance: LAMOTRIGINE
  12. QUETIAPINE FUMARATE [Concomitant]
     Active Substance: QUETIAPINE FUMARATE
  13. QUETIAPINE FUMARATE [Concomitant]
     Active Substance: QUETIAPINE FUMARATE
  14. DOCUSATE SODIUM [Concomitant]
     Active Substance: DOCUSATE SODIUM
  15. ALLERGY RELIEF [CETIRIZINE HYDROCHLORIDE] [Concomitant]
  16. ACIDOPHILUS [Concomitant]
     Active Substance: LACTOBACILLUS ACIDOPHILUS
  17. PRAZOSIN HYDROCHLORIDE [Concomitant]
     Active Substance: PRAZOSIN HYDROCHLORIDE

REACTIONS (7)
  - Urinary incontinence [Unknown]
  - Pollakiuria [Unknown]
  - Enuresis [Unknown]
  - Memory impairment [Unknown]
  - Diarrhoea [Unknown]
  - Constipation [Unknown]
  - Rash [Unknown]

NARRATIVE: CASE EVENT DATE: 20220623
